FAERS Safety Report 23203425 (Version 1)
Quarter: 2023Q4

REPORT INFORMATION
  Report Type: Spontaneous
  Country: AT (occurrence: AT)
  Receive Date: 20231120
  Receipt Date: 20231120
  Transmission Date: 20240109
  Serious: Yes (Death, Other)
  Sender: FDA-Public Use
  Company Number: AT-PFIZER INC-2005110862

PATIENT
  Age: 4 Year
  Sex: Female
  Weight: 19.5 kg

DRUGS (1)
  1. SOMATROPIN [Suspect]
     Active Substance: SOMATROPIN
     Indication: Prader-Willi syndrome
     Dosage: 0.24 MG/KG, WEEKLY
     Route: 065

REACTIONS (2)
  - Cardiopulmonary failure [Fatal]
  - Pulmonary arterial pressure increased [Unknown]
